FAERS Safety Report 8001553-7 (Version None)
Quarter: 2011Q4

REPORT INFORMATION
  Report Type: 
  Country: None (occurrence: None)
  Receive Date: 20111219
  Receipt Date: 20111214
  Transmission Date: 20120403
  Serious: Yes (Hospitalization)
  Sender: FDA-Public Use
  Company Number: GER/UKI/11/0021869

PATIENT
  Age: 66 Year
  Sex: Female
  Weight: 67 kg

DRUGS (3)
  1. AMLODIPINE [Suspect]
     Indication: BLOOD PRESSURE
     Dosage: 5 MG, 1 IN 1 D, ORAL
     Route: 048
     Dates: end: 20111025
  2. LANSOPRAZOLE [Concomitant]
  3. MEMANTINE HCL [Suspect]
     Indication: DEMENTIA
     Dosage: 10 MG, 2 IN 1 D, ORAL
     Route: 048
     Dates: end: 20111025

REACTIONS (1)
  - PANCREATITIS ACUTE [None]
